FAERS Safety Report 6532347-7 (Version None)
Quarter: 2010Q1

REPORT INFORMATION
  Report Type: 
  Country: None (occurrence: None)
  Receive Date: 20100108
  Receipt Date: 20100102
  Transmission Date: 20100710
  Serious: Yes (Death)
  Sender: FDA-Public Use
  Company Number: IR-GENENTECH-296548

PATIENT
  Age: 16 Year
  Sex: Female

DRUGS (1)
  1. MABTHERA [Suspect]
     Indication: SYSTEMIC LUPUS ERYTHEMATOSUS
     Dosage: 500 MG, UNK
     Route: 042
     Dates: start: 20091201, end: 20091201

REACTIONS (1)
  - PULMONARY HAEMORRHAGE [None]
